FAERS Safety Report 12994575 (Version 1)
Quarter: 2016Q4

REPORT INFORMATION
  Report Type: Spontaneous
  Country: AU (occurrence: AU)
  Receive Date: 20161202
  Receipt Date: 20161202
  Transmission Date: 20170207
  Serious: Yes (Hospitalization)
  Sender: FDA-Public Use
  Company Number: PHHY2016AU163167

PATIENT
  Age: 48 Year
  Sex: Female

DRUGS (1)
  1. GILENYA [Suspect]
     Active Substance: FINGOLIMOD HYDROCHLORIDE
     Indication: RELAPSING-REMITTING MULTIPLE SCLEROSIS
     Dosage: 0.5 MG, QD
     Route: 048
     Dates: start: 20161124, end: 20161125

REACTIONS (5)
  - Swollen tongue [Unknown]
  - Anaphylactic reaction [Recovered/Resolved]
  - Dysgeusia [Unknown]
  - Paraesthesia oral [Unknown]
  - Nausea [Unknown]

NARRATIVE: CASE EVENT DATE: 20161124
